FAERS Safety Report 10244403 (Version 1)
Quarter: 2014Q1

REPORT INFORMATION
  Report Type: Spontaneous
  Country: US (occurrence: None)
  Receive Date: 20140306
  Receipt Date: 20140306
  Transmission Date: 20141002
  Serious: Yes (Hospitalization, Other)
  Sender: FDA-Public Use
  Company Number: 163-21880-13012907

PATIENT
  Age: 81 Year
  Sex: Female
  Weight: 92.08 kg

DRUGS (12)
  1. REVLIMID (LENALIDOMIDE) (25 MILLIGRAM, CAPSULES) [Suspect]
     Indication: PLASMA CELL MYELOMA
     Route: 048
     Dates: start: 20121112, end: 201301
  2. ASPIRIN (ACETYLSALICYLIC ACID) (TABLETS) [Concomitant]
  3. ATENOLOL (UNKNOWN) [Concomitant]
  4. DULCOLAX STOOL SOFTENER (DOCUSATE SODIUM) (UNKNOWN) [Concomitant]
  5. LASIX (FUROSEMIDE) (TABLETS) [Concomitant]
  6. MIRALAX (MACROGOL) (UNKNOWN) [Concomitant]
  7. SIMVASTATIN (UNNKOWN) [Concomitant]
  8. VICODIN (UNKNOWN) [Concomitant]
  9. VITAMIN B-12 (CYANOCOBALAMIN) (UNKNOWN) [Concomitant]
  10. ZOCOR (SIMVASTATIN) (UNKNOWN) [Concomitant]
  11. ZOMETA (ZOLEDRONIC ACID) (INJECTION FOR INFUSION) [Concomitant]
  12. KCL (POTASSIUM CHLORIDE) (CAPSULES) [Concomitant]

REACTIONS (3)
  - Pancytopenia [None]
  - Anaemia [None]
  - Fatigue [None]
